FAERS Safety Report 14472179 (Version 1)
Quarter: 2018Q1

REPORT INFORMATION
  Report Type: Spontaneous
  Country: US (occurrence: US)
  Receive Date: 20180131
  Receipt Date: 20180131
  Transmission Date: 20180509
  Serious: No
  Sender: FDA-Public Use
  Company Number: US-ASTRAZENECA-2018SE12014

PATIENT
  Age: 65 Year
  Sex: Female

DRUGS (1)
  1. BYDUREON [Suspect]
     Active Substance: EXENATIDE
     Indication: TYPE 2 DIABETES MELLITUS
     Route: 058
     Dates: start: 20171104

REACTIONS (6)
  - Vomiting [Unknown]
  - Viral infection [Unknown]
  - Injection site reaction [Unknown]
  - Injection site mass [Unknown]
  - Injection site erythema [Recovered/Resolved]
  - Glycosylated haemoglobin decreased [Unknown]

NARRATIVE: CASE EVENT DATE: 201711
